FAERS Safety Report 24176779 (Version 1)
Quarter: 2024Q3

REPORT INFORMATION
  Report Type: Spontaneous
  Country: US (occurrence: US)
  Receive Date: 20240806
  Receipt Date: 20240806
  Transmission Date: 20241017
  Serious: No
  Sender: SANOFI AVENTIS
  Company Number: US-SANOFI-02161962

PATIENT
  Sex: Female

DRUGS (1)
  1. DUPIXENT [Suspect]
     Active Substance: DUPILUMAB
     Indication: Asthma
     Dosage: UNK
     Dates: start: 202407, end: 2024

REACTIONS (4)
  - Paraesthesia [Unknown]
  - Peripheral swelling [Unknown]
  - Blister [Unknown]
  - Skin tightness [Unknown]

NARRATIVE: CASE EVENT DATE: 20240101
